FAERS Safety Report 21958402 (Version 3)
Quarter: 2023Q1

REPORT INFORMATION
  Report Type: Spontaneous
  Country: US (occurrence: US)
  Receive Date: 20230206
  Receipt Date: 20230310
  Transmission Date: 20230418
  Serious: No
  Sender: FDA-Public Use
  Company Number: US-BIOGEN-2023BI01185627

PATIENT
  Sex: Female

DRUGS (21)
  1. VUMERITY [Suspect]
     Active Substance: DIROXIMEL FUMARATE
     Indication: Multiple sclerosis
     Dosage: TAKE 1 CAPSULE BY?MOUTH TWICE A DAY?FOR 1 WEEK THEN TWO?CAPSULES BY MOUTH?TWICE A DAY
     Route: 050
     Dates: start: 20230217
  2. ASPIRIN [Suspect]
     Active Substance: ASPIRIN
     Indication: Flushing
     Route: 050
  3. LEVOTHYROXINE SODIUM [Concomitant]
     Active Substance: LEVOTHYROXINE SODIUM
     Route: 050
  4. ESTRADIOL [Concomitant]
     Active Substance: ESTRADIOL
     Route: 050
  5. LISINOPRIL [Concomitant]
     Active Substance: LISINOPRIL
     Route: 050
  6. METHYLPHENIDATE HYDROCHLORIDE [Concomitant]
     Active Substance: METHYLPHENIDATE HYDROCHLORIDE
     Route: 050
  7. VITAMIN B6 [Concomitant]
     Active Substance: PYRIDOXINE HYDROCHLORIDE
     Route: 050
  8. MONTELUKAST SODIUM [Concomitant]
     Active Substance: MONTELUKAST SODIUM
     Route: 050
  9. FLONASE ALLERGY RELIEF [Concomitant]
     Active Substance: FLUTICASONE PROPIONATE
     Dosage: FLONASE ALLERGY RELIEF FLONASE ALGY SPR 50MCG OTC
     Route: 050
  10. AZELASTINE HYDROCHLORIDE [Concomitant]
     Active Substance: AZELASTINE HYDROCHLORIDE
     Route: 050
  11. AZELASTINE [Concomitant]
     Active Substance: AZELASTINE
     Dosage: 0.1% 30ML SPRAY
     Route: 050
  12. SINGULAIR [Concomitant]
     Active Substance: MONTELUKAST SODIUM
     Route: 050
  13. ALBUTEROL [Concomitant]
     Active Substance: ALBUTEROL
     Route: 050
  14. NYSTATIN [Concomitant]
     Active Substance: NYSTATIN
     Route: 050
  15. TRELEGY ELLIPTA [Concomitant]
     Active Substance: FLUTICASONE FUROATE\UMECLIDINIUM BROMIDE\VILANTEROL TRIFENATATE
     Route: 050
  16. TRELEGY ELLIPTA [Concomitant]
     Active Substance: FLUTICASONE FUROATE\UMECLIDINIUM BROMIDE\VILANTEROL TRIFENATATE
     Dosage: 100-62.5-25 MCG INHALER
     Route: 050
  17. LEXAPRO [Concomitant]
     Active Substance: ESCITALOPRAM OXALATE
     Route: 050
  18. TRAZODONE HCL [Concomitant]
     Active Substance: TRAZODONE HYDROCHLORIDE
     Route: 050
  19. ZYRTEC [Concomitant]
     Active Substance: CETIRIZINE HYDROCHLORIDE
     Route: 050
  20. SUMATRIPTAN SUCCINATE [Concomitant]
     Active Substance: SUMATRIPTAN SUCCINATE
     Route: 050
  21. EMGALITY [Concomitant]
     Active Substance: GALCANEZUMAB-GNLM
     Route: 050

REACTIONS (5)
  - Viral infection [Unknown]
  - Cluster headache [Unknown]
  - Flushing [Unknown]
  - Dyspepsia [Unknown]
  - Pain [Unknown]
